FAERS Safety Report 5065745-1 (Version None)
Quarter: 2006Q3

REPORT INFORMATION
  Report Type: 
  Country: None (occurrence: None)
  Receive Date: 20060731
  Receipt Date: 20060622
  Transmission Date: 20061208
  Serious: Yes (Other)
  Sender: FDA-Public Use
  Company Number: JP-ROCHE-453379

PATIENT
  Age: 18 Year
  Sex: Female
  Weight: 53 kg

DRUGS (2)
  1. ROCEPHIN [Suspect]
     Indication: BARTHOLIN'S ABSCESS
     Route: 041
     Dates: start: 20060615, end: 20060615
  2. SWORD [Concomitant]
     Route: 048
     Dates: start: 20060609, end: 20060619

REACTIONS (1)
  - ASTHMA [None]
